FAERS Safety Report 24315862 (Version 2)
Quarter: 2025Q2

REPORT INFORMATION
  Report Type: Spontaneous
  Country: AU (occurrence: AU)
  Receive Date: 20240913
  Receipt Date: 20250609
  Transmission Date: 20250716
  Serious: Yes (Hospitalization, Other)
  Sender: RANBAXY
  Company Number: AU-SUN PHARMACEUTICAL INDUSTRIES LTD-2024R1-467474

PATIENT

DRUGS (6)
  1. SERTRALINE [Suspect]
     Active Substance: SERTRALINE HYDROCHLORIDE
     Indication: Product used for unknown indication
     Route: 048
  2. BUPRENORPHINE [Suspect]
     Active Substance: BUPRENORPHINE
     Indication: Product used for unknown indication
     Route: 048
  3. IBUPROFEN [Suspect]
     Active Substance: IBUPROFEN
     Indication: Product used for unknown indication
     Route: 048
  4. MIRTAZAPINE [Suspect]
     Active Substance: MIRTAZAPINE
     Indication: Product used for unknown indication
     Route: 048
  5. ACETAMINOPHEN [Suspect]
     Active Substance: ACETAMINOPHEN
     Indication: Product used for unknown indication
     Route: 048
  6. ORPHENADRINE [Suspect]
     Active Substance: ORPHENADRINE
     Indication: Intentional overdose
     Route: 048

REACTIONS (3)
  - Intentional overdose [Unknown]
  - Poisoning deliberate [Unknown]
  - Somnolence [Unknown]
